FAERS Safety Report 16257834 (Version 1)
Quarter: 2019Q2

REPORT INFORMATION
  Report Type: Report from Study
  Country: US (occurrence: US)
  Receive Date: 20190430
  Receipt Date: 20190430
  Transmission Date: 20190711
  Serious: Yes (Death, Hospitalization, Other)
  Sender: FDA-Public Use
  Company Number: US-JNJFOC-20190316120

PATIENT
  Age: 87 Year
  Sex: Male

DRUGS (12)
  1. IRON [Concomitant]
     Active Substance: IRON
  2. METFORMIN [Concomitant]
     Active Substance: METFORMIN HYDROCHLORIDE
  3. ZYRTEC [Concomitant]
     Active Substance: CETIRIZINE HYDROCHLORIDE
  4. IMBRUVICA [Suspect]
     Active Substance: IBRUTINIB
     Indication: CHRONIC LYMPHOCYTIC LEUKAEMIA
     Route: 048
     Dates: start: 20190218, end: 20190305
  5. CENTRUM [Concomitant]
     Active Substance: VITAMINS
  6. GLUCOSAMINE [Concomitant]
     Active Substance: GLUCOSAMINE
  7. HYDROXYZINE [Concomitant]
     Active Substance: HYDROXYZINE HYDROCHLORIDE
  8. ASPIRIN. [Suspect]
     Active Substance: ASPIRIN
     Indication: PRODUCT USED FOR UNKNOWN INDICATION
     Route: 065
  9. PRAVASTATIN. [Concomitant]
     Active Substance: PRAVASTATIN
  10. ZOFRAN [Concomitant]
     Active Substance: ONDANSETRON HYDROCHLORIDE
  11. FLUOCINONIDE. [Concomitant]
     Active Substance: FLUOCINONIDE
  12. PROCHLORPERAZINE. [Concomitant]
     Active Substance: PROCHLORPERAZINE

REACTIONS (3)
  - Incorrect dose administered [Unknown]
  - Off label use [Unknown]
  - Cerebellar haemorrhage [Fatal]

NARRATIVE: CASE EVENT DATE: 20190218
